FAERS Safety Report 6812575-3 (Version None)
Quarter: 2010Q3

REPORT INFORMATION
  Report Type: 
  Country: None (occurrence: None)
  Receive Date: 20100701
  Receipt Date: 20100622
  Transmission Date: 20110219
  Serious: Yes (Other)
  Sender: FDA-Public Use
  Company Number: BR-PFIZER INC-2010054144

PATIENT
  Age: 60 Year
  Sex: Female
  Weight: 80 kg

DRUGS (6)
  1. LYRICA [Suspect]
     Indication: BACK PAIN
     Dosage: 150 MG, 1X/DAY
     Route: 048
     Dates: start: 20100424, end: 20100101
  2. RIVOTRIL [Suspect]
     Indication: MIGRAINE
     Dosage: UNK
  3. LOSARTAN [Concomitant]
     Indication: HYPERTENSION
     Dosage: UNK
  4. FLUOXETINE [Concomitant]
     Indication: DEPRESSION
     Dosage: UNK
  5. SIMVASTATIN [Concomitant]
     Indication: BLOOD CHOLESTEROL INCREASED
     Dosage: UNK
  6. SIMVASTATIN [Concomitant]
     Indication: BLOOD TRIGLYCERIDES INCREASED

REACTIONS (5)
  - CHEST PAIN [None]
  - FEELING ABNORMAL [None]
  - HEAD DISCOMFORT [None]
  - HEART RATE INCREASED [None]
  - SOMNOLENCE [None]
